FAERS Safety Report 5279542-5 (Version None)
Quarter: 2007Q1

REPORT INFORMATION
  Report Type: 
  Country: None (occurrence: None)
  Receive Date: 20070322
  Receipt Date: 20070315
  Transmission Date: 20070707
  Serious: Yes (Life-Threatening, Hospitalization)
  Sender: FDA-Public Use
  Company Number: 18/07

PATIENT
  Age: 64 Year
  Sex: Female

DRUGS (3)
  1. SODIUM IODIDE I 131 [Suspect]
     Dosage: 5.5 GBQ
  2. PREDNISOLONE [Concomitant]
  3. HYDROCORTISONE [Concomitant]

REACTIONS (3)
  - DYSPHONIA [None]
  - DYSPNOEA [None]
  - LOCAL SWELLING [None]
